FAERS Safety Report 5486221-8 (Version None)
Quarter: 2007Q4

REPORT INFORMATION
  Report Type: 
  Country: None (occurrence: None)
  Receive Date: 20071012
  Receipt Date: 20070907
  Transmission Date: 20080405
  Serious: Yes (Other)
  Sender: FDA-Public Use
  Company Number: STI-2007-01524

PATIENT
  Age: 75 Year
  Sex: Female

DRUGS (4)
  1. CLOBETASOL PROPIONATE [Suspect]
     Indication: DERMATITIS
     Dosage: TOPICAL
     Route: 061
  2. CORTICOSTEROID INJECTIONS (CORTICOSTERIOD) [Suspect]
     Indication: DERMATITIS
  3. METHYLPREDNISOLONE [Suspect]
     Indication: DERMATITIS
     Dosage: INTRAMUSCULAR
  4. PREDISOLONE (PREDNISOLONE) [Concomitant]
     Indication: DERMATITIS
     Dosage: ORAL
     Route: 048

REACTIONS (4)
  - DERMATITIS [None]
  - DRUG DEPENDENCE [None]
  - SKIN ATROPHY [None]
  - STEROID WITHDRAWAL SYNDROME [None]
